FAERS Safety Report 5808515-6 (Version None)
Quarter: 2008Q3

REPORT INFORMATION
  Report Type: 
  Country: None (occurrence: None)
  Receive Date: 20080714
  Receipt Date: 20080707
  Transmission Date: 20090109
  Serious: Yes (Hospitalization, Disabling)
  Sender: FDA-Public Use
  Company Number: US-ELI_LILLY_AND_COMPANY-US200807001458

PATIENT
  Sex: Male

DRUGS (1)
  1. ZYPREXA [Suspect]
     Dosage: UNK, UNK
     Dates: start: 19970101, end: 20080101

REACTIONS (6)
  - CHOLECYSTECTOMY [None]
  - DIABETES MELLITUS [None]
  - DISABILITY [None]
  - MYOCARDIAL INFARCTION [None]
  - ULCER [None]
  - VIOLENCE-RELATED SYMPTOM [None]
